FAERS Safety Report 6856414-3 (Version None)
Quarter: 2010Q3

REPORT INFORMATION
  Report Type: 
  Country: None (occurrence: None)
  Receive Date: 20100719
  Receipt Date: 20100707
  Transmission Date: 20110219
  Serious: Yes (Life-Threatening, Hospitalization)
  Sender: FDA-Public Use
  Company Number: JP-ROCHE-693934

PATIENT
  Sex: Female
  Weight: 43 kg

DRUGS (5)
  1. XELODA [Suspect]
     Indication: COLON CANCER
     Dosage: DISCONTINUED
     Route: 048
     Dates: start: 20100302, end: 20100316
  2. BIO-THREE [Concomitant]
     Dosage: DOSE: 1 DF.
     Route: 048
     Dates: start: 20100129, end: 20100317
  3. MAGNESIUM OXIDE [Concomitant]
     Dosage: DOSE FORM: POWDERED MEDICINE.
     Route: 048
     Dates: start: 20100117, end: 20100317
  4. LENDORMIN [Concomitant]
     Dosage: DRUG REPORTED AS LENDORMIN D.
     Route: 048
     Dates: start: 20100123
  5. DAI-KENCHU-TO [Concomitant]
     Dosage: DOSE FORM: GRANULATED POWDER.
     Route: 048
     Dates: start: 20100131, end: 20100317

REACTIONS (7)
  - DIARRHOEA [None]
  - FEBRILE NEUTROPENIA [None]
  - MUCOUS MEMBRANE DISORDER [None]
  - NEUTROPENIA [None]
  - PALMAR-PLANTAR ERYTHRODYSAESTHESIA SYNDROME [None]
  - PANCYTOPENIA [None]
  - STOMATITIS [None]
